FAERS Safety Report 8616904-X (Version None)
Quarter: 2012Q3

REPORT INFORMATION
  Report Type: 
  Country: None (occurrence: None)
  Receive Date: 20120823
  Receipt Date: 20120810
  Transmission Date: 20120928
  Serious: No
  Sender: FDA-Public Use
  Company Number: US-009507513-1208USA005395

PATIENT

DRUGS (8)
  1. SINGULAIR [Suspect]
     Indication: HYPERSENSITIVITY
  2. SINGULAIR [Suspect]
     Dosage: 10 MG, QD
     Route: 048
     Dates: start: 20110201
  3. SINGULAIR [Suspect]
     Indication: ASTHMA
     Dosage: 5 MG, QD
     Route: 048
  4. SINGULAIR [Suspect]
  5. PROAIR (ALBUTEROL SULFATE) [Concomitant]
  6. ZYRTEC [Concomitant]
  7. FLONASE [Concomitant]
  8. ALLEGRA [Concomitant]

REACTIONS (2)
  - COUGH [None]
  - RHINORRHOEA [None]
